FAERS Safety Report 6731845-0 (Version None)
Quarter: 2010Q2

REPORT INFORMATION
  Report Type: 
  Country: None (occurrence: None)
  Receive Date: 20100519
  Receipt Date: 20100510
  Transmission Date: 20101027
  Serious: Yes (Other)
  Sender: FDA-Public Use
  Company Number: SE-NOVOPROD-308241

PATIENT
  Sex: Female

DRUGS (2)
  1. NOVORAPID [Suspect]
     Dosage: UNK
  2. NOVORAPID [Suspect]
     Dosage: UNK

REACTIONS (1)
  - KETOACIDOSIS [None]
